FAERS Safety Report 23255638 (Version 2)
Quarter: 2025Q3

REPORT INFORMATION
  Report Type: Spontaneous
  Country: US (occurrence: US)
  Receive Date: 20231203
  Receipt Date: 20250814
  Transmission Date: 20251021
  Serious: Yes (Other)
  Sender: SANOFI AVENTIS
  Company Number: US-SA-SAC20231201000259

PATIENT
  Sex: Female
  Weight: 86.168 kg

DRUGS (2)
  1. DUPIXENT [Suspect]
     Active Substance: DUPILUMAB
     Indication: Asthma
     Dosage: 300 MG, QOW
     Route: 058
  2. DUPIXENT [Suspect]
     Active Substance: DUPILUMAB
     Indication: Cardiac failure

REACTIONS (3)
  - COVID-19 pneumonia [Recovered/Resolved]
  - Urinary tract infection [Recovered/Resolved]
  - Product use in unapproved indication [Unknown]
